FAERS Safety Report 16733585 (Version 1)
Quarter: 2019Q3

REPORT INFORMATION
  Report Type: Spontaneous
  Country: US (occurrence: US)
  Receive Date: 20190823
  Receipt Date: 20190823
  Transmission Date: 20191005
  Serious: No
  Sender: FDA-Public Use
  Company Number: US-ALKEM LABORATORIES LIMITED-US-ALKEM-2019-06025

PATIENT
  Age: 44 Year
  Sex: Female
  Weight: 50 kg

DRUGS (3)
  1. METHOTREXATE. [Concomitant]
     Active Substance: METHOTREXATE
     Indication: PRODUCT USED FOR UNKNOWN INDICATION
     Dosage: UNKNOWN (PILLS)
     Route: 065
     Dates: start: 2018
  2. METHOTREXATE. [Concomitant]
     Active Substance: METHOTREXATE
     Dosage: UNKNOWN (INJECTION)
     Route: 065
     Dates: end: 20190513
  3. DALFAMPRIDINE. [Suspect]
     Active Substance: DALFAMPRIDINE
     Indication: MULTIPLE SCLEROSIS
     Dosage: 1 DOSAGE FORM, BID
     Route: 048
     Dates: start: 201812

REACTIONS (5)
  - Oropharyngeal discomfort [Unknown]
  - Drug ineffective [Unknown]
  - Sensory disturbance [Unknown]
  - Paraesthesia [Unknown]
  - Feeling abnormal [Unknown]

NARRATIVE: CASE EVENT DATE: 201901
